FAERS Safety Report 24264135 (Version 1)
Quarter: 2024Q3

REPORT INFORMATION
  Report Type: Spontaneous
  Country: US (occurrence: None)
  Receive Date: 20240828
  Receipt Date: 20240828
  Transmission Date: 20241017
  Serious: Yes (Disabling, Other)
  Sender: Public
  Company Number: None

PATIENT
  Age: 66 Year
  Sex: Male
  Weight: 63 kg

DRUGS (15)
  1. CLONAZEPAM [Suspect]
     Active Substance: CLONAZEPAM
     Indication: Muscle spasms
     Dosage: 100 TABLETS TWICE A DAY ORAL
     Route: 048
     Dates: start: 20240416, end: 20240806
  2. AMLODIPINE [Concomitant]
  3. LISINOPRIL [Concomitant]
  4. XARELTO [Concomitant]
  5. Oxybutyin [Concomitant]
  6. Pregablin [Concomitant]
  7. DULOXETINE [Concomitant]
  8. ATORVASTATIN [Concomitant]
  9. BACLOFEN [Concomitant]
  10. Men^s one a day [Concomitant]
  11. Benefiber [Concomitant]
  12. STOOL SOFTENER (DOCUSATE) [Concomitant]
     Active Substance: DOCUSATE
  13. Fiber Con [Concomitant]
  14. FOLIC ACID [Concomitant]
     Active Substance: FOLIC ACID
  15. Cranberry [Concomitant]

REACTIONS (3)
  - Respiration abnormal [None]
  - Somnolence [None]
  - Speech disorder [None]

NARRATIVE: CASE EVENT DATE: 20240621
